FAERS Safety Report 19416181 (Version 8)
Quarter: 2021Q4

REPORT INFORMATION
  Report Type: Report from Study
  Country: FR (occurrence: FR)
  Receive Date: 20210614
  Receipt Date: 20211222
  Transmission Date: 20220303
  Serious: Yes (Death, Hospitalization, Other)
  Sender: FDA-Public Use
  Company Number: FR-002147023-NVSC2021FR124255

PATIENT

DRUGS (5)
  1. RUXOLITINIB [Suspect]
     Active Substance: RUXOLITINIB
     Indication: Primary myelofibrosis
     Dosage: 10 MG, DAILY
     Route: 048
     Dates: start: 20200706, end: 20210217
  2. KARDEGIC [Concomitant]
     Active Substance: ASPIRIN DL-LYSINE
     Indication: Vascular graft
     Dosage: 160 UNK
     Route: 048
     Dates: start: 19960209
  3. PROPRANOLOL HYDROCHLORIDE [Concomitant]
     Active Substance: PROPRANOLOL HYDROCHLORIDE
     Indication: Coronary artery bypass
     Dosage: UNK
     Route: 048
  4. ALLOPURINOL [Concomitant]
     Active Substance: ALLOPURINOL
     Indication: Coronary artery bypass
     Dosage: UNK
     Route: 048
     Dates: start: 19960209
  5. TAMSULOSIN HYDROCHLORIDE [Concomitant]
     Active Substance: TAMSULOSIN HYDROCHLORIDE
     Indication: Vascular graft
     Dosage: UNK
     Route: 048

REACTIONS (22)
  - Aspartate aminotransferase increased [Unknown]
  - Abdominal pain [Unknown]
  - Adult failure to thrive [Fatal]
  - Cholangitis [Unknown]
  - Renal failure [Unknown]
  - Oedema peripheral [Unknown]
  - C-reactive protein [Unknown]
  - Liver function test abnormal [Not Recovered/Not Resolved]
  - Atrial fibrillation [Unknown]
  - Gamma-glutamyltransferase increased [Unknown]
  - Anaemia [Unknown]
  - Hyperleukocytosis [Fatal]
  - Hypotension [Unknown]
  - Jaundice [Unknown]
  - Blood lactic acid increased [Unknown]
  - Melaena [Fatal]
  - Blood alkaline phosphatase increased [Unknown]
  - Respiratory disorder [Unknown]
  - Hypoxia [Unknown]
  - Slipping rib syndrome [Unknown]
  - Pyrexia [Unknown]
  - Tachycardia [Unknown]

NARRATIVE: CASE EVENT DATE: 20210121
